FAERS Safety Report 9157473 (Version 1)
Quarter: 2013Q1

REPORT INFORMATION
  Report Type: Spontaneous
  Country: CA (occurrence: None)
  Receive Date: 20130213
  Receipt Date: 20130213
  Transmission Date: 20140127
  Serious: Yes (Other)
  Sender: FDA-Public Use
  Company Number: IMP_06549_2013

PATIENT
  Age: 17 Year
  Sex: Female

DRUGS (1)
  1. DOXYCYCLINE [Suspect]
     Indication: ACNE
     Dosage: DF, ORAL, (1 WEEK 0 DAYS UNTIL NOT CONTINUING)
     Route: 048

REACTIONS (5)
  - Odynophagia [None]
  - Dysphagia [None]
  - Discomfort [None]
  - Dyspnoea exertional [None]
  - Oesophageal injury [None]
